FAERS Safety Report 7133535-1 (Version None)
Quarter: 2010Q4

REPORT INFORMATION
  Report Type: 
  Country: None (occurrence: None)
  Receive Date: 20101202
  Receipt Date: 20101129
  Transmission Date: 20110411
  Serious: Yes (Other)
  Sender: FDA-Public Use
  Company Number: ES-PFIZER INC-ES-WYE-H18264510

PATIENT
  Age: 18 Year
  Sex: Male
  Weight: 88 kg

DRUGS (4)
  1. REFACTO [Suspect]
     Indication: FACTOR VIII DEFICIENCY
     Dosage: 3000 IU ON DEMAND
     Route: 042
     Dates: start: 20090922
  2. MOROCTOCOG ALFA [Suspect]
     Dosage: 3000 IU ON DEMAND
     Dates: start: 20090922
  3. MOROCTOCOG ALFA [Suspect]
     Dosage: 3000 IU ON DEMAND
     Dates: start: 20090922
  4. MOROCTOCOG ALFA [Suspect]
     Dosage: 3000 IU ON DEMAND
     Dates: start: 20090922

REACTIONS (1)
  - FACTOR VIII INHIBITION [None]
